FAERS Safety Report 7956581-4 (Version None)
Quarter: 2011Q4

REPORT INFORMATION
  Report Type: 
  Country: None (occurrence: None)
  Receive Date: 20111205
  Receipt Date: 20111128
  Transmission Date: 20120403
  Serious: Yes (Other)
  Sender: FDA-Public Use
  Company Number: PHHY2011FR103345

PATIENT
  Age: 61 Year
  Sex: Male

DRUGS (1)
  1. ZOLEDRONOC ACID [Suspect]
     Indication: OSTEOPOROSIS
     Dosage: UNK UKN, UNK
     Route: 042

REACTIONS (5)
  - DIZZINESS [None]
  - NEUROLOGICAL DECOMPENSATION [None]
  - GAIT DISTURBANCE [None]
  - CEREBELLAR SYNDROME [None]
  - CEREBRAL VENTRICLE DILATATION [None]
